FAERS Safety Report 14650058 (Version 1)
Quarter: 2018Q1

REPORT INFORMATION
  Report Type: Spontaneous
  Country: GB (occurrence: DE)
  Receive Date: 20180316
  Receipt Date: 20180316
  Transmission Date: 20180509
  Serious: Yes (Hospitalization)
  Sender: FDA-Public Use
  Company Number: DE-FRESENIUS KABI-FK201803127

PATIENT
  Age: 41 Year
  Sex: Female

DRUGS (3)
  1. BEVACIZUMAB. [Suspect]
     Active Substance: BEVACIZUMAB
     Indication: LUNG ADENOCARCINOMA
     Route: 065
  2. GEMCITABINE [Suspect]
     Active Substance: GEMCITABINE\GEMCITABINE HYDROCHLORIDE
     Indication: LUNG ADENOCARCINOMA
     Route: 065
  3. CISPLATIN. [Suspect]
     Active Substance: CISPLATIN
     Indication: LUNG ADENOCARCINOMA
     Route: 065

REACTIONS (10)
  - Posterior reversible encephalopathy syndrome [Recovering/Resolving]
  - Confusional state [Recovering/Resolving]
  - Partial seizures [Recovered/Resolved]
  - Vomiting [Recovering/Resolving]
  - Generalised tonic-clonic seizure [Recovered/Resolved]
  - Blood pressure increased [Recovering/Resolving]
  - Hallucination, visual [Recovering/Resolving]
  - Ataxia [Recovering/Resolving]
  - Headache [Recovering/Resolving]
  - Nausea [Recovering/Resolving]
